FAERS Safety Report 10427617 (Version 2)
Quarter: 2014Q3

REPORT INFORMATION
  Report Type: Spontaneous
  Country: DE (occurrence: DE)
  Receive Date: 20140903
  Receipt Date: 20140903
  Transmission Date: 20150326
  Serious: Yes (Hospitalization)
  Sender: FDA-Public Use
  Company Number: DE-EISAI INC-E2007-01854-SPO-DE

PATIENT
  Age: 36 Year
  Sex: Female
  Weight: 90 kg

DRUGS (2)
  1. APYDAN [Suspect]
     Active Substance: OXCARBAZEPINE
     Indication: PRODUCT USED FOR UNKNOWN INDICATION
     Dosage: UNKNOWN
     Route: 048
  2. FYCOMPA [Suspect]
     Active Substance: PERAMPANEL
     Indication: PRODUCT USED FOR UNKNOWN INDICATION
     Dosage: UNKNOWN
     Route: 048

REACTIONS (4)
  - Poisoning [Unknown]
  - Somnolence [Unknown]
  - Hypertension [None]
  - Hyperglycaemia [None]

NARRATIVE: CASE EVENT DATE: 20140818
